FAERS Safety Report 20123774 (Version 1)
Quarter: 2021Q4

REPORT INFORMATION
  Report Type: Other
  Country: US (occurrence: None)
  Receive Date: 20211129
  Receipt Date: 20211129
  Transmission Date: 20220303
  Serious: Yes (Hospitalization, Other)
  Sender: FDA-Public Use
  Company Number: US-ROCHE-2960493

PATIENT
  Age: 64 Year
  Sex: Female
  Weight: 62.198 kg

DRUGS (25)
  1. OCREVUS [Suspect]
     Active Substance: OCRELIZUMAB
     Indication: Multiple sclerosis
     Route: 042
  2. RITUXAN [Suspect]
     Active Substance: RITUXIMAB
     Indication: Multiple sclerosis
     Route: 065
  3. MODERNA COVID-19 VACCINE [Concomitant]
     Active Substance: ELASOMERAN
     Dates: start: 20210319, end: 20210416
  4. DALFAMPRIDINE [Concomitant]
     Active Substance: DALFAMPRIDINE
     Route: 048
  5. BACLOFEN [Concomitant]
     Active Substance: BACLOFEN
     Indication: Multiple sclerosis
     Dosage: 10 MG PILL, TAKE 1-3 PILLS 3 TIMES A DAY, PATIENT TAKES 2 PILLS 3 TIMES A?DAY
     Route: 048
  6. BACLOFEN [Concomitant]
     Active Substance: BACLOFEN
  7. DULOXETINE [Concomitant]
     Active Substance: DULOXETINE
     Route: 048
  8. DULOXETINE [Concomitant]
     Active Substance: DULOXETINE
  9. METHENAMINE [Concomitant]
     Active Substance: METHENAMINE
     Indication: Incontinence
     Route: 048
  10. ESTER C (UNITED STATES) [Concomitant]
     Route: 048
  11. TROSPIUM CHLORIDE [Concomitant]
     Active Substance: TROSPIUM CHLORIDE
     Indication: Incontinence
     Route: 048
  12. TRULANCE [Concomitant]
     Active Substance: PLECANATIDE
     Route: 048
  13. PROLIA [Concomitant]
     Active Substance: DENOSUMAB
     Dosage: 60MG/ML
     Route: 058
  14. VALACYCLOVIR [Concomitant]
     Active Substance: VALACYCLOVIR HYDROCHLORIDE
  15. METHENAMINE HIPPURATE [Concomitant]
     Active Substance: METHENAMINE HIPPURATE
  16. LAMOTRIGINE [Concomitant]
     Active Substance: LAMOTRIGINE
  17. ESTRADIOL [Concomitant]
     Active Substance: ESTRADIOL
  18. TROSPIUM [Concomitant]
     Active Substance: TROSPIUM
  19. CRANBERRY [Concomitant]
     Active Substance: CRANBERRY
  20. LYSINE [Concomitant]
     Active Substance: LYSINE
  21. OMEGA-3 ACIDS [Concomitant]
     Active Substance: OMEGA-3 FATTY ACIDS
  22. FISH OIL [Concomitant]
     Active Substance: FISH OIL
  23. ERGOCALCIFEROL [Concomitant]
     Active Substance: ERGOCALCIFEROL
  24. AMPYRA [Concomitant]
     Active Substance: DALFAMPRIDINE
  25. NITROBID [Concomitant]

REACTIONS (6)
  - COVID-19 [Recovered/Resolved]
  - Multiple sclerosis relapse [Recovered/Resolved]
  - Urinary tract infection [Recovered/Resolved]
  - Multiple sclerosis [Not Recovered/Not Resolved]
  - Fall [Unknown]
  - Off label use [Unknown]

NARRATIVE: CASE EVENT DATE: 20211007
